FAERS Safety Report 8422190 (Version 4)
Quarter: 2013Q4

REPORT INFORMATION
  Report Type: Spontaneous
  Country: DE (occurrence: DE)
  Receive Date: 20120223
  Receipt Date: 20131224
  Transmission Date: 20140711
  Serious: Yes (Hospitalization, Other)
  Sender: FDA-Public Use
  Company Number: DE-ELI_LILLY_AND_COMPANY-DE201202003954

PATIENT
  Age: 48 Year
  Sex: Female

DRUGS (5)
  1. OLANZAPINE [Suspect]
     Dosage: 10 MG, SINGLE
  2. LORAZEPAM [Concomitant]
     Dosage: 4.5 MG, QD
  3. LORAZEPAM [Concomitant]
     Dosage: 3 MG, QD
  4. HALOPERIDOL [Concomitant]
     Dosage: 5 MG, UNK
  5. HALOPERIDOL [Concomitant]
     Dosage: 2 MG, UNK

REACTIONS (1)
  - Hypothermia [Recovered/Resolved]
